FAERS Safety Report 5174092-9 (Version None)
Quarter: 2006Q4

REPORT INFORMATION
  Report Type: 
  Country: None (occurrence: None)
  Receive Date: 20061206
  Receipt Date: 20061110
  Transmission Date: 20070319
  Serious: Yes (Other)
  Sender: FDA-Public Use
  Company Number: TPA2003A01318

PATIENT
  Age: 54 Year
  Sex: Male
  Weight: 107.0489 kg

DRUGS (12)
  1. ACTOS [Suspect]
     Indication: DIABETES MELLITUS NON-INSULIN-DEPENDENT
     Dosage: SEE IMAGE
     Route: 048
     Dates: start: 20001213, end: 20030516
  2. ACTOS [Suspect]
     Indication: DIABETES MELLITUS NON-INSULIN-DEPENDENT
     Dosage: SEE IMAGE
     Route: 048
     Dates: start: 20030516, end: 20030918
  3. AVANDIA [Suspect]
     Indication: DIABETES MELLITUS NON-INSULIN-DEPENDENT
     Dosage: 8 MG, 1 IN 1 D, PER ORAL
     Route: 048
     Dates: end: 20050624
  4. GLUCOVANCE [Concomitant]
  5. ALTACE (RAMIPRIL) (10 MILLIGRAM) [Concomitant]
  6. HYDROCHLOROTHIAZIDE (HYDROCHLOROTHIAZIDE) (12.5 MILLIGRAM) [Concomitant]
  7. NORVASC (AMLODIPINE BESILATE) (10 MILLIGRAM) [Concomitant]
  8. ASPIRIN [Concomitant]
  9. MULTIVITAMIN [Concomitant]
  10. TOPROL-XL [Suspect]
  11. TELMISARTAN (TELMISARTAN) [Concomitant]
  12. REPAGLINIDE [Concomitant]

REACTIONS (16)
  - ANAEMIA [None]
  - BLOOD PRESSURE INADEQUATELY CONTROLLED [None]
  - CATARACT [None]
  - CATARACT NUCLEAR [None]
  - DIABETIC RETINAL OEDEMA [None]
  - DIABETIC RETINOPATHY [None]
  - DRUG ERUPTION [None]
  - EYE SWELLING [None]
  - JOINT SWELLING [None]
  - MACULAR OEDEMA [None]
  - OEDEMA PERIPHERAL [None]
  - PROTEIN URINE PRESENT [None]
  - RETINAL OEDEMA [None]
  - VISION BLURRED [None]
  - VISUAL ACUITY REDUCED [None]
  - VITREOUS FLOATERS [None]
